FAERS Safety Report 19402929 (Version 2)
Quarter: 2021Q2

REPORT INFORMATION
  Report Type: Report from Study
  Country: CZ (occurrence: CZ)
  Receive Date: 20210610
  Receipt Date: 20210616
  Transmission Date: 20210717
  Serious: Yes (Hospitalization)
  Sender: FDA-Public Use
  Company Number: CZ-ROCHE-2820927

PATIENT
  Age: 57 Year
  Sex: Male

DRUGS (10)
  1. RANIBIZUMAB. [Suspect]
     Active Substance: RANIBIZUMAB
     Indication: DIABETIC RETINAL OEDEMA
     Dosage: START DATE OF MOST RECENT DOSE OF STUDY DRUG PRIOR TO AE AND SAE: 21/APR/2020
     Route: 050
  2. GODASAL [Concomitant]
     Active Substance: ASPIRIN\GLYCINE
     Dosage: 100MG/50MG TBL
     Route: 048
     Dates: start: 201808
  3. FARICIMAB. [Suspect]
     Active Substance: FARICIMAB
     Indication: DIABETIC RETINAL OEDEMA
     Dosage: DOSE LAST STUDY DRUG ADMIN PRIOR AE OR SAE: 6 MG?START DATE OF MOST RECENT DOSE OF STUDY DRUG PRIOR
     Route: 050
  4. TULIP (CZECH REPUBLIC) [Concomitant]
     Indication: HYPERLIPIDAEMIA
     Route: 048
     Dates: start: 201805
  5. FARICIMAB. [Suspect]
     Active Substance: FARICIMAB
     Dosage: DOSE LAST STUDY DRUG ADMIN PRIOR AE OR SAE: 6 MG?START DATE OF MOST RECENT DOSE OF STUDY DRUG PRIOR
     Route: 050
  6. AGEN [Concomitant]
     Active Substance: AMLODIPINE BESYLATE
     Indication: HYPERTENSION
     Route: 048
     Dates: start: 201805
  7. NOVALGIN (CZECH REPUBLIC) [Concomitant]
     Indication: LIMB INJURY
     Route: 048
     Dates: start: 20190926
  8. XULTOPHY 100/3.6 [Concomitant]
     Active Substance: INSULIN DEGLUDEC\LIRAGLUTIDE
     Indication: TYPE 2 DIABETES MELLITUS
     Route: 058
     Dates: start: 20190927
  9. CLOPIDOGREL [Concomitant]
     Active Substance: CLOPIDOGREL BISULFATE
     Indication: LIMB INJURY
     Route: 048
     Dates: start: 20191003
  10. RANIBIZUMAB. [Suspect]
     Active Substance: RANIBIZUMAB
     Dosage: START DATE OF MOST RECENT DOSE OF STUDY DRUG PRIOR TO AE: 16/AUG/2019?START DATE OF MOST RECENT DOSE
     Route: 050

REACTIONS (3)
  - Diabetic gangrene [Not Recovered/Not Resolved]
  - Diabetic neuropathy [Recovered/Resolved]
  - Limb injury [Not Recovered/Not Resolved]

NARRATIVE: CASE EVENT DATE: 20190902
